FAERS Safety Report 15020594 (Version 1)
Quarter: 2018Q2

REPORT INFORMATION
  Report Type: Spontaneous
  Country: US (occurrence: US)
  Receive Date: 20180618
  Receipt Date: 20180618
  Transmission Date: 20180711
  Serious: No
  Sender: FDA-Public Use
  Company Number: US-MALLINCKRODT-T201704790

PATIENT
  Sex: Female
  Weight: 70 kg

DRUGS (1)
  1. HYDROCODONE/ACETAMINOPHEN [Suspect]
     Active Substance: ACETAMINOPHEN\HYDROCODONE
     Indication: PAIN
     Dosage: 5/325MG ONE TABLET TWICE DAILY AS NEEDED
     Route: 048

REACTIONS (2)
  - Product formulation issue [Unknown]
  - Migraine [Unknown]
